FAERS Safety Report 24959632 (Version 1)
Quarter: 2025Q1

REPORT INFORMATION
  Report Type: Spontaneous
  Country: US (occurrence: US)
  Receive Date: 20250212
  Receipt Date: 20250212
  Transmission Date: 20250409
  Serious: Yes (Hospitalization)
  Sender: DR REDDYS
  Company Number: US-DRL-USA-USA/2025/02/001911

PATIENT
  Age: 33 Year
  Sex: Male

DRUGS (1)
  1. CLOZAPINE [Suspect]
     Active Substance: CLOZAPINE
     Indication: Product used for unknown indication
     Dosage: TAKING 450MG ORAL TABLETS OF CLOZAPINE IN THE AM AND IN THE PM
     Route: 048

REACTIONS (3)
  - Adverse event [Unknown]
  - Neutrophilia [Unknown]
  - Off label use [Unknown]

NARRATIVE: CASE EVENT DATE: 20250129
